FAERS Safety Report 7070918-2 (Version None)
Quarter: 2010Q4

REPORT INFORMATION
  Report Type: 
  Country: None (occurrence: None)
  Receive Date: 20101029
  Receipt Date: 20101019
  Transmission Date: 20110411
  Serious: Yes (Hospitalization)
  Sender: FDA-Public Use
  Company Number: JP-BAYER-201015234BYL

PATIENT
  Age: 78 Year
  Sex: Female
  Weight: 44 kg

DRUGS (15)
  1. NEXAVAR [Suspect]
     Indication: HEPATIC NEOPLASM MALIGNANT
     Dosage: TOTAL DAILY DOSE: 800 MG  UNIT DOSE: 200 MG
     Route: 048
     Dates: start: 20100730, end: 20100809
  2. NEXAVAR [Suspect]
     Dosage: TOTAL DAILY DOSE: 400 MG  UNIT DOSE: 200 MG
     Route: 048
     Dates: start: 20100810, end: 20100930
  3. ALEVIATIN [Suspect]
     Indication: CONVULSION
     Route: 048
     Dates: start: 19990101
  4. MUCOSTA [Concomitant]
     Route: 048
     Dates: start: 20090101
  5. TAKEPRON [Concomitant]
     Route: 048
     Dates: start: 20060101
  6. BUP-4 [Concomitant]
     Route: 048
     Dates: start: 20070101
  7. CYANOCOBALAMIN [Concomitant]
     Route: 065
     Dates: start: 20080101
  8. LIVACT [Concomitant]
     Route: 048
     Dates: start: 20010101
  9. CANDESARTAN CILEXETIL [Concomitant]
     Route: 048
     Dates: start: 20100730
  10. PYDOXAL [Concomitant]
     Route: 065
     Dates: start: 20100730
  11. UREPEARL [Concomitant]
     Route: 061
     Dates: start: 20100730
  12. RINDERON-VG [Concomitant]
     Route: 061
     Dates: start: 20100730
  13. FLUITRAN [Concomitant]
     Route: 048
     Dates: start: 20100730
  14. ZYRTEC [Concomitant]
     Route: 048
     Dates: start: 20100730
  15. MYSER [Concomitant]
     Route: 061
     Dates: start: 20100730

REACTIONS (1)
  - DIZZINESS [None]
